FAERS Safety Report 25433389 (Version 1)
Quarter: 2025Q2

REPORT INFORMATION
  Report Type: Report from Study
  Country: US (occurrence: US)
  Receive Date: 20250613
  Receipt Date: 20250613
  Transmission Date: 20250717
  Serious: Yes (Hospitalization)
  Sender: GILEAD
  Company Number: US-GILEAD-2025-0716793

PATIENT
  Sex: Female

DRUGS (14)
  1. AZTREONAM LYSINE [Suspect]
     Active Substance: AZTREONAM LYSINE
     Indication: Cystic fibrosis
     Dosage: INHALE 75 MG 3 TIMES DAILY FOR 28 DAYS ON AND 28 DAYS OFF CYCLE
     Route: 055
  2. XANAX [Concomitant]
     Active Substance: ALPRAZOLAM
  3. UBRELVY [Concomitant]
     Active Substance: UBROGEPANT
  4. ZITHROMAX [Concomitant]
     Active Substance: AZITHROMYCIN DIHYDRATE
  5. QULIPTA [Concomitant]
     Active Substance: ATOGEPANT
  6. FLONASE [Concomitant]
     Active Substance: FLUTICASONE PROPIONATE
  7. ADVAIR HFA [Concomitant]
     Active Substance: FLUTICASONE PROPIONATE\SALMETEROL XINAFOATE
  8. PEPCID [Concomitant]
     Active Substance: FAMOTIDINE
  9. ALBUTEROL SULFATE [Concomitant]
     Active Substance: ALBUTEROL SULFATE
  10. ZYRTEC [Concomitant]
     Active Substance: CETIRIZINE HYDROCHLORIDE
  11. ACETAZOLAMIDE [Concomitant]
     Active Substance: ACETAZOLAMIDE
  12. VITAMIN D2 [Concomitant]
     Active Substance: ERGOCALCIFEROL
  13. VITAMINS [Concomitant]
     Active Substance: VITAMINS
  14. SODIUM CHLORIDE [Concomitant]
     Active Substance: SODIUM CHLORIDE

REACTIONS (1)
  - Infection [Unknown]
